FAERS Safety Report 5914918-1 (Version None)
Quarter: 2008Q4

REPORT INFORMATION
  Report Type: 
  Country: None (occurrence: None)
  Receive Date: 20081010
  Receipt Date: 20081006
  Transmission Date: 20090506
  Serious: Yes (Death)
  Sender: FDA-Public Use
  Company Number: PHHY2008MX23811

PATIENT
  Age: 73 Year
  Sex: Male

DRUGS (1)
  1. STALEVO 100 [Suspect]
     Indication: PARKINSON'S DISEASE
     Dosage: 2 TABS (200/150/37.5 MG) DAILY
     Route: 048
     Dates: start: 20061101

REACTIONS (1)
  - MYOCARDIAL INFARCTION [None]
